FAERS Safety Report 8981486 (Version 1)
Quarter: 2012Q4

REPORT INFORMATION
  Report Type: Report from Study
  Country: FR (occurrence: FR)
  Receive Date: 20121221
  Receipt Date: 20121221
  Transmission Date: 20130627
  Serious: Yes (Other)
  Sender: FDA-Public Use
  Company Number: FR-US-EMD SERONO, INC.-7182771

PATIENT
  Age: 28 Year
  Sex: Female

DRUGS (2)
  1. REBIF [Suspect]
     Indication: PRODUCT USED FOR UNKNOWN INDICATION
     Route: 058
     Dates: start: 20121116, end: 2012
  2. REBIF [Suspect]
     Route: 058
     Dates: start: 2012

REACTIONS (6)
  - Loss of consciousness [Recovered/Resolved]
  - Convulsion [Recovered/Resolved]
  - Malaise [Recovered/Resolved]
  - Depression [Recovering/Resolving]
  - Pyrexia [Unknown]
  - Infusion site erythema [Recovering/Resolving]
